FAERS Safety Report 9716979 (Version 1)
Quarter: 2013Q4

REPORT INFORMATION
  Report Type: Spontaneous
  Country: US (occurrence: US)
  Receive Date: 20131127
  Receipt Date: 20131127
  Transmission Date: 20140711
  Serious: No
  Sender: FDA-Public Use
  Company Number: US-GILEAD-2009-0020175

PATIENT
  Sex: Male
  Weight: 65.77 kg

DRUGS (7)
  1. LETAIRIS [Suspect]
     Indication: PULMONARY ARTERIAL HYPERTENSION
     Route: 048
     Dates: start: 20081224
  2. ISRADIPINE [Concomitant]
  3. AVAPRO [Concomitant]
  4. SPIRIVA [Concomitant]
  5. ADVAIR [Concomitant]
  6. ASPIRIN [Concomitant]
  7. CENTRUM SILVER [Concomitant]

REACTIONS (1)
  - Oedema peripheral [Unknown]
